FAERS Safety Report 8395007-6 (Version None)
Quarter: 2012Q2

REPORT INFORMATION
  Report Type: 
  Country: None (occurrence: None)
  Receive Date: 20120530
  Receipt Date: 20120518
  Transmission Date: 20120825
  Serious: Yes (Death, Hospitalization, Other)
  Sender: FDA-Public Use
  Company Number: JP-ELI_LILLY_AND_COMPANY-JP201204004016

PATIENT
  Sex: Female
  Weight: 58 kg

DRUGS (10)
  1. ZYPREXA [Suspect]
     Indication: BIPOLAR II DISORDER
     Dosage: 5 MG, UNK
     Route: 048
     Dates: start: 20110516
  2. AMOBAN [Concomitant]
     Indication: BIPOLAR II DISORDER
     Dosage: 10 MG, UNK
     Route: 048
  3. ZYPREXA [Suspect]
     Dosage: 7.5 MG, UNK
     Route: 048
     Dates: start: 20120221
  4. PHENOBARBITAL TAB [Concomitant]
     Indication: BIPOLAR II DISORDER
     Dosage: 2 DF, UNK
  5. PHENOBARBITAL TAB [Concomitant]
     Dosage: 36 DF, UNK
     Route: 048
     Dates: start: 20120306, end: 20120306
  6. DIAZEPAM [Concomitant]
     Dosage: 236 MG, UNK
     Route: 048
     Dates: start: 20120306, end: 20120306
  7. ZYPREXA [Suspect]
     Dosage: 150 MG, UNK
     Route: 048
     Dates: start: 20120306, end: 20120306
  8. SILECE [Concomitant]
     Indication: BIPOLAR II DISORDER
     Dosage: 4 MG, UNK
     Route: 048
  9. DIAZEPAM [Concomitant]
     Indication: BIPOLAR II DISORDER
     Dosage: 15 MG, UNK
     Route: 048
  10. NITRAZEPAM [Concomitant]
     Indication: BIPOLAR II DISORDER
     Dosage: 10 MG, UNK
     Route: 048
     Dates: start: 20050118

REACTIONS (13)
  - VENTRICULAR TACHYCARDIA [None]
  - HYPOXIA [None]
  - TOXICITY TO VARIOUS AGENTS [None]
  - UPPER AIRWAY OBSTRUCTION [None]
  - RENAL FAILURE ACUTE [None]
  - INTENTIONAL OVERDOSE [None]
  - RHABDOMYOLYSIS [None]
  - NEUROLEPTIC MALIGNANT SYNDROME [None]
  - BLOOD PRESSURE DECREASED [None]
  - BLOOD GLUCOSE INCREASED [None]
  - SEPTIC SHOCK [None]
  - DECUBITUS ULCER [None]
  - LIVER FUNCTION TEST ABNORMAL [None]
